FAERS Safety Report 13110192 (Version 1)
Quarter: 2017Q1

REPORT INFORMATION
  Report Type: Spontaneous
  Country: US (occurrence: US)
  Receive Date: 20170112
  Receipt Date: 20170112
  Transmission Date: 20170428
  Serious: Yes (Other)
  Sender: FDA-Public Use
  Company Number: US-ROCHE-GNE294295

PATIENT
  Age: 60 Year
  Sex: Female
  Weight: 70.08 kg

DRUGS (3)
  1. ACTIVACIN [Suspect]
     Active Substance: ALTEPLASE
     Indication: THROMBOTIC STROKE
     Dosage: 63 MG, X1
     Route: 042
     Dates: start: 20091111
  2. PROPOFOL. [Concomitant]
     Active Substance: PROPOFOL
     Indication: PRODUCT USED FOR UNKNOWN INDICATION
  3. INSULIN [Concomitant]
     Active Substance: INSULIN NOS
     Indication: PRODUCT USED FOR UNKNOWN INDICATION

REACTIONS (1)
  - Haemorrhage intracranial [Recovered/Resolved with Sequelae]

NARRATIVE: CASE EVENT DATE: 20091112
